FAERS Safety Report 5206845-2 (Version None)
Quarter: 2007Q1

REPORT INFORMATION
  Report Type: 
  Country: None (occurrence: None)
  Receive Date: 20070109
  Receipt Date: 20070102
  Transmission Date: 20070707
  Serious: Yes (Death, Hospitalization, Other)
  Sender: FDA-Public Use
  Company Number: 430001N07JPN

PATIENT
  Age: 28 Year
  Sex: Male

DRUGS (14)
  1. NOVANTRONE [Suspect]
     Indication: ACUTE MYELOID LEUKAEMIA RECURRENT
     Dates: start: 20060814, end: 20060816
  2. MYLOTARG [Suspect]
     Indication: ACUTE MYELOID LEUKAEMIA RECURRENT
     Dosage: 6 MG/M2, 1 IN 1 DAYS, INTRAVENOUS; SEE IMAGE
     Route: 042
     Dates: start: 20060609, end: 20060609
  3. MYLOTARG [Suspect]
     Indication: ACUTE MYELOID LEUKAEMIA RECURRENT
     Dosage: 6 MG/M2, 1 IN 1 DAYS, INTRAVENOUS; SEE IMAGE
     Route: 042
     Dates: start: 20060623, end: 20060623
  4. CYTARABINE [Suspect]
     Indication: ACUTE MYELOID LEUKAEMIA RECURRENT
     Dosage: INTRAVENOUS
     Route: 042
     Dates: start: 20060610, end: 20060616
  5. CYTARABINE [Suspect]
     Indication: ACUTE MYELOID LEUKAEMIA RECURRENT
     Dosage: INTRAVENOUS
     Route: 042
     Dates: start: 20060814, end: 20060818
  6. IDARUBICIN HCL [Suspect]
     Indication: ACUTE MYELOID LEUKAEMIA RECURRENT
     Dosage: INTRAVENOUS
     Route: 042
     Dates: start: 20060610, end: 20060616
  7. GRANISETRON [Concomitant]
  8. HYDROCORTISONE SODIUM SUCCINATE [Concomitant]
  9. ENOXAPARIN SODIUM [Concomitant]
  10. ITRACONAZOLE [Concomitant]
  11. FAMOTIDINE [Concomitant]
  12. TEPRENONE [Concomitant]
  13. BACTRIM [Concomitant]
  14. POLYMYXIN B SULFATE [Concomitant]

REACTIONS (10)
  - ANAEMIA [None]
  - CHILLS [None]
  - DIARRHOEA [None]
  - EPISTAXIS [None]
  - HEADACHE [None]
  - HEPATIC FUNCTION ABNORMAL [None]
  - NEUTROPHIL COUNT DECREASED [None]
  - PEAU D'ORANGE [None]
  - PLATELET COUNT DECREASED [None]
  - SEPSIS [None]
